FAERS Safety Report 8434367-4 (Version None)
Quarter: 2012Q2

REPORT INFORMATION
  Report Type: 
  Country: None (occurrence: None)
  Receive Date: 20120613
  Receipt Date: 20120601
  Transmission Date: 20120825
  Serious: Yes (Other)
  Sender: FDA-Public Use
  Company Number: US-RB-041242-12

PATIENT

DRUGS (1)
  1. BUPRENORPHINE [Suspect]
     Indication: DRUG WITHDRAWAL SYNDROME NEONATAL
     Dosage: TREATMENT DURATION 23 ? 12 DAYS
     Route: 060

REACTIONS (6)
  - GASTROOESOPHAGEAL REFLUX DISEASE [None]
  - AMINOACIDURIA [None]
  - PARONYCHIA [None]
  - TRANSAMINASES INCREASED [None]
  - FEEDING DISORDER NEONATAL [None]
  - CYTOMEGALOVIRUS INFECTION [None]
